FAERS Safety Report 13438940 (Version 1)
Quarter: 2017Q2

REPORT INFORMATION
  Report Type: Spontaneous
  Country: US (occurrence: US)
  Receive Date: 20170413
  Receipt Date: 20170413
  Transmission Date: 20170830
  Serious: No
  Sender: FDA-Public Use
  Company Number: US-ROCHE-804031

PATIENT
  Age: 82 Year
  Sex: Female

DRUGS (1)
  1. XENICAL [Suspect]
     Active Substance: ORLISTAT
     Indication: OBESITY
     Dosage: FRTEQUENCY: QD (EVERY DAY, BID (TWO TIMES IN DAY), TID (THREE TIMES IN DAY)
     Route: 048

REACTIONS (3)
  - Nephrolithiasis [Unknown]
  - Hepatic enzyme increased [Unknown]
  - Medication error [Unknown]
